FAERS Safety Report 7744446-2 (Version None)
Quarter: 2011Q3

REPORT INFORMATION
  Report Type: 
  Country: None (occurrence: None)
  Receive Date: 20110912
  Receipt Date: 20110831
  Transmission Date: 20111222
  Serious: Yes (Hospitalization)
  Sender: FDA-Public Use
  Company Number: US-UCBSA-040459

PATIENT
  Sex: Male

DRUGS (1)
  1. CIMZIA [Suspect]
     Indication: CROHN'S DISEASE
     Route: 058
     Dates: start: 20110823

REACTIONS (4)
  - DEVICE RELATED SEPSIS [None]
  - ANAEMIA [None]
  - ABDOMINAL ABSCESS [None]
  - FUNGAEMIA [None]
